FAERS Safety Report 8679585 (Version 2)
Quarter: 2012Q4

REPORT INFORMATION
  Report Type: Report from Study
  Country: DE (occurrence: DE)
  Receive Date: 20120724
  Receipt Date: 20121106
  Transmission Date: 20130627
  Serious: Yes (Hospitalization)
  Sender: FDA-Public Use
  Company Number: DE-009507513-2012SP031716

PATIENT
  Age: 64 Year
  Sex: Male
  Weight: 92 kg

DRUGS (8)
  1. ASENAPINE MALEATE [Suspect]
     Indication: BIPOLAR I DISORDER
     Dosage: 10 mg, qd
     Route: 048
     Dates: start: 20110916, end: 20110922
  2. ASENAPINE MALEATE [Suspect]
     Dosage: 15 mg, qd
     Route: 048
     Dates: start: 20110923, end: 20110930
  3. ASENAPINE MALEATE [Suspect]
     Dosage: 5 mg, qd
     Route: 048
     Dates: start: 20111001, end: 20111024
  4. QUILONORM (LITHIUM ACETATE) [Concomitant]
     Indication: BIPOLAR I DISORDER
     Dosage: 2 DF, qd
     Route: 048
     Dates: end: 20111006
  5. VALPROAT [Concomitant]
     Indication: BIPOLAR I DISORDER
     Dosage: 1200 mg, qd
     Dates: start: 20110520
  6. SEROQUEL [Concomitant]
     Indication: BIPOLAR I DISORDER
     Dosage: 300 mg, qd
     Dates: start: 201101
  7. AMITRIPTYLINE HYDROCHLORIDE [Concomitant]
     Indication: DEPRESSION
     Dosage: 75 mg, qd
     Dates: end: 20111009
  8. AMITRIPTYLINE HYDROCHLORIDE [Concomitant]
     Dosage: 25 mg, qd
     Dates: start: 20111010

REACTIONS (4)
  - Mania [Unknown]
  - Drug effect decreased [Not Recovered/Not Resolved]
  - Depression [Unknown]
  - Disturbance in attention [None]
